FAERS Safety Report 18760001 (Version 3)
Quarter: 2024Q1

REPORT INFORMATION
  Report Type: Spontaneous
  Country: US (occurrence: US)
  Receive Date: 20210120
  Receipt Date: 20240218
  Transmission Date: 20240410
  Serious: Yes (Other)
  Sender: FDA-Public Use
  Company Number: US-JNJFOC-20210120251

PATIENT
  Age: 5 Decade
  Sex: Female

DRUGS (2)
  1. ELMIRON [Suspect]
     Active Substance: PENTOSAN POLYSULFATE SODIUM
     Indication: Cystitis interstitial
     Dosage: IN VARYING DOSES AND FREQUENCIES
     Route: 048
     Dates: start: 2006, end: 2010
  2. BENICAR [Concomitant]
     Active Substance: OLMESARTAN MEDOXOMIL
     Indication: Hypertension
     Dates: start: 20090101

REACTIONS (4)
  - Pigmentary maculopathy [Unknown]
  - Cataract [Unknown]
  - Dizziness [Recovering/Resolving]
  - Off label use [Unknown]
